FAERS Safety Report 16918531 (Version 2)
Quarter: 2019Q4

REPORT INFORMATION
  Report Type: Spontaneous
  Country: CA (occurrence: CA)
  Receive Date: 20191015
  Receipt Date: 20191016
  Transmission Date: 20200122
  Serious: Yes (Other)
  Sender: FDA-Public Use
  Company Number: CA-PFIZER INC-2019441013

PATIENT
  Sex: Male

DRUGS (2)
  1. METHOTREXATE SODIUM. [Suspect]
     Active Substance: METHOTREXATE SODIUM
     Dosage: 25 MG TO 7.5 MG, WEEKLY
     Route: 065
     Dates: start: 2014, end: 2017
  2. LEFLUNOMIDE. [Concomitant]
     Active Substance: LEFLUNOMIDE
     Dosage: 10-20 MG
     Route: 065
     Dates: start: 201703

REACTIONS (3)
  - Nausea [Unknown]
  - Fatigue [Unknown]
  - Drug intolerance [Unknown]
